FAERS Safety Report 9286981 (Version 1)
Quarter: 2013Q2

REPORT INFORMATION
  Report Type: Spontaneous
  Country: US (occurrence: US)
  Receive Date: 20130513
  Receipt Date: 20130513
  Transmission Date: 20140414
  Serious: No
  Sender: FDA-Public Use
  Company Number: US-ASTRAZENECA-2013SE29180

PATIENT
  Sex: 0

DRUGS (2)
  1. PRILOSEC [Suspect]
     Route: 048
  2. INHALER [Suspect]
     Route: 065

REACTIONS (3)
  - Asthma [Unknown]
  - Chronic obstructive pulmonary disease [Unknown]
  - Hypersensitivity [Unknown]
